FAERS Safety Report 22209329 (Version 3)
Quarter: 2023Q4

REPORT INFORMATION
  Report Type: Report from Study
  Country: CO (occurrence: CO)
  Receive Date: 20230413
  Receipt Date: 20231012
  Transmission Date: 20240109
  Serious: Yes (Hospitalization, Other)
  Sender: FDA-Public Use
  Company Number: CO-ABBVIE-4726377

PATIENT
  Sex: Female
  Weight: 59 kg

DRUGS (3)
  1. HUMIRA [Suspect]
     Active Substance: ADALIMUMAB
     Indication: Rheumatoid arthritis
     Dosage: FORM STRENGTH: 40 MILLIGRAM
     Route: 058
     Dates: start: 20230324, end: 20230726
  2. HUMIRA [Suspect]
     Active Substance: ADALIMUMAB
     Dosage: FORM STRENGTH: 40 MILLIGRAM
     Route: 058
     Dates: start: 20230712
  3. ACETAMINOPHEN [Concomitant]
     Active Substance: ACETAMINOPHEN
     Indication: Knee operation
     Route: 048

REACTIONS (16)
  - Arthralgia [Recovering/Resolving]
  - Erythema [Recovering/Resolving]
  - Gait disturbance [Recovering/Resolving]
  - Inflammation [Recovering/Resolving]
  - Osteoarthritis [Recovering/Resolving]
  - Fibromyalgia [Recovered/Resolved]
  - Musculoskeletal discomfort [Recovering/Resolving]
  - Feeling hot [Recovering/Resolving]
  - Immunodeficiency [Recovering/Resolving]
  - Fatigue [Recovering/Resolving]
  - Incision site inflammation [Recovering/Resolving]
  - Purulent discharge [Recovering/Resolving]
  - Bacterial infection [Recovering/Resolving]
  - Fibromyalgia [Recovering/Resolving]
  - Fibromyalgia [Recovered/Resolved]
  - Postoperative wound infection [Recovering/Resolving]

NARRATIVE: CASE EVENT DATE: 20220101
